FAERS Safety Report 6867390-1 (Version None)
Quarter: 2010Q3

REPORT INFORMATION
  Report Type: 
  Country: None (occurrence: None)
  Receive Date: 20100722
  Receipt Date: 20100718
  Transmission Date: 20110219
  Serious: Yes (Death, Other)
  Sender: FDA-Public Use
  Company Number: GB-SANOFI-AVENTIS-2010SA041843

PATIENT
  Sex: Female

DRUGS (3)
  1. OXALIPLATIN [Suspect]
     Indication: PRODUCT USED FOR UNKNOWN INDICATION
     Route: 065
  2. FLUOROURACIL [Concomitant]
     Route: 065
  3. LEUCOVORIN CALCIUM [Concomitant]
     Route: 065

REACTIONS (3)
  - HAEMORRHAGE INTRACRANIAL [None]
  - HEADACHE [None]
  - THROMBOCYTOPENIA [None]
